FAERS Safety Report 4433869-5 (Version None)
Quarter: 2004Q3

REPORT INFORMATION
  Report Type: 
  Country: None (occurrence: None)
  Receive Date: 20040826
  Receipt Date: 20040810
  Transmission Date: 20050211
  Serious: Yes (Death, Hospitalization)
  Sender: FDA-Public Use
  Company Number: FR-GLAXOSMITHKLINE-B0341945A

PATIENT
  Age: 95 Year
  Sex: Female

DRUGS (3)
  1. AUGMENTIN '125' [Suspect]
     Dosage: 3G PER DAY
     Route: 048
     Dates: start: 20040328, end: 20040331
  2. OFLOCET [Suspect]
     Indication: URINARY TRACT INFECTION
     Dosage: 400MG SEE DOSAGE TEXT
     Route: 048
     Dates: start: 20040331, end: 20040527
  3. CLAFORAN [Concomitant]
     Dates: start: 20040510, end: 20040514

REACTIONS (2)
  - CLOSTRIDIUM COLITIS [None]
  - DIARRHOEA [None]
